FAERS Safety Report 5449476-1 (Version None)
Quarter: 2007Q3

REPORT INFORMATION
  Report Type: 
  Country: None (occurrence: None)
  Receive Date: 20070907
  Receipt Date: 20070823
  Transmission Date: 20080115
  Serious: Yes (Other)
  Sender: FDA-Public Use
  Company Number: 2007RR-09467

PATIENT
  Age: 27 Year
  Sex: Male
  Weight: 75 kg

DRUGS (5)
  1. MIDAZOLAM SOLUTION FOR INJECTION 5MG/ML (MIDAZOLAM) INJECTION [Suspect]
     Indication: GENERAL ANAESTHESIA
     Dosage: 1 MG, INTRAVENOUS
     Route: 042
  2. FENTANYL [Suspect]
     Dosage: 100 UG,
  3. PROPOFOL [Suspect]
     Indication: GENERAL ANAESTHESIA
     Dosage: 300 MG,
  4. ISOFLURANE [Suspect]
     Indication: GENERAL ANAESTHESIA
  5. LIDOCAINE [Concomitant]

REACTIONS (13)
  - APHASIA [None]
  - APNOEA [None]
  - CHILLS [None]
  - DEPRESSED LEVEL OF CONSCIOUSNESS [None]
  - HEMIPARESIS [None]
  - HYPERVENTILATION [None]
  - LOSS OF CONSCIOUSNESS [None]
  - MIGRAINE WITH AURA [None]
  - NAUSEA [None]
  - NECK PAIN [None]
  - OXYGEN SATURATION DECREASED [None]
  - POST PROCEDURAL COMPLICATION [None]
  - RESPIRATORY ALKALOSIS [None]
